FAERS Safety Report 9158869 (Version 1)
Quarter: 2013Q1

REPORT INFORMATION
  Report Type: Spontaneous
  Country: None (occurrence: None)
  Receive Date: 20130211
  Receipt Date: 20130211
  Transmission Date: 20140127
  Serious: Yes (Hospitalization)
  Sender: FDA-Public Use
  Company Number: AG-2013-0220

PATIENT
  Age: 62 Year
  Sex: Male
  Weight: 61 kg

DRUGS (6)
  1. CHLORAMBUCIL [Suspect]
     Indication: CHRONIC LYMPHOCYTIC LEUKAEMIA
     Dosage: 1 AND 15 DAYS EVERY 28 DAYS
     Route: 048
  2. RITUXIMAB [Suspect]
     Indication: CHRONIC LYMPHOCYTIC LEUKAEMIA
     Dosage: 1 IN 28 DAYS
     Route: 042
  3. BISOPOROLOL (BISOPROLOL) (UNKNOWN) [Concomitant]
  4. CALCIVIT D (CALCIUM CARBONATE) (UNKNOWN) [Concomitant]
  5. PROPIVANE HYDROCHLORIDE (OTHERS) (UNKNOWN) [Concomitant]
  6. AMPHO-MORONAL (AMPHOTERICIN B) (UNKNOWN) [Concomitant]

REACTIONS (1)
  - Urinary tract infection [None]
